FAERS Safety Report 6768793-6 (Version None)
Quarter: 2010Q2

REPORT INFORMATION
  Report Type: 
  Country: None (occurrence: None)
  Receive Date: 20100611
  Receipt Date: 20100601
  Transmission Date: 20101027
  Serious: Yes (Other)
  Sender: FDA-Public Use
  Company Number: 2009S1003966

PATIENT
  Age: 78 Year
  Sex: Female
  Weight: 71.2147 kg

DRUGS (12)
  1. PHOSPHOSODA FLAVOR NOT SPECIFIED [Suspect]
     Indication: COLONOSCOPY
     Dosage: 90 ML; TOTAL;PO
     Route: 048
     Dates: start: 20061009, end: 20061010
  2. DULCOLAX [Suspect]
     Indication: COLONOSCOPY
     Dosage: 4DF;X1;PO
     Route: 048
     Dates: start: 20061009, end: 20061009
  3. ATENOLOL [Concomitant]
  4. ACTONEL [Concomitant]
  5. ACIPHEX [Concomitant]
  6. LIPITOR [Concomitant]
  7. DYAZIDE [Concomitant]
  8. ASPIRIN [Concomitant]
  9. OSCAL [Concomitant]
  10. LORAZEPAM [Concomitant]
  11. LEVISINEX [Concomitant]
  12. PREVPAC [Concomitant]

REACTIONS (6)
  - ABDOMINAL PAIN LOWER [None]
  - ASTHENIA [None]
  - DIARRHOEA [None]
  - NEPHROSCLEROSIS [None]
  - RENAL FAILURE ACUTE [None]
  - RENAL FAILURE CHRONIC [None]
